FAERS Safety Report 7944870-9 (Version None)
Quarter: 2011Q4

REPORT INFORMATION
  Report Type: 
  Country: None (occurrence: None)
  Receive Date: 20111129
  Receipt Date: 20110624
  Transmission Date: 20120403
  Serious: No
  Sender: FDA-Public Use
  Company Number: US-MYLANLABS-2011S1013145

PATIENT
  Age: 78 Year
  Sex: Female
  Weight: 96.16 kg

DRUGS (5)
  1. SYNTHROID [Concomitant]
  2. AMLODIPINE BESYLATE [Suspect]
     Indication: CHEST PAIN
     Route: 048
     Dates: start: 20110519, end: 20110501
  3. GLUCOVANCE [Concomitant]
  4. ASPIRIN [Concomitant]
  5. ATENOLOL [Concomitant]

REACTIONS (4)
  - OEDEMA PERIPHERAL [None]
  - MUSCLE SPASMS [None]
  - SWELLING [None]
  - GINGIVAL SWELLING [None]
